FAERS Safety Report 12215607 (Version 1)
Quarter: 2016Q1

REPORT INFORMATION
  Report Type: Spontaneous
  Country: US (occurrence: US)
  Receive Date: 20160328
  Receipt Date: 20160328
  Transmission Date: 20160526
  Serious: Yes (Hospitalization, Other)
  Sender: FDA-Public Use
  Company Number: US-SA-2016SA059115

PATIENT
  Age: 70 Year
  Sex: Female

DRUGS (1)
  1. LANTUS SOLOSTAR [Suspect]
     Active Substance: INSULIN GLARGINE
     Indication: TYPE 2 DIABETES MELLITUS
     Dosage: DOSE- SLIDING SCALE,FREQUENCY-AFTER MEALS
     Route: 065

REACTIONS (9)
  - Nephrolithiasis [Unknown]
  - Blood disorder [Unknown]
  - Hypoacusis [Unknown]
  - Local swelling [Unknown]
  - Pyrexia [Unknown]
  - Visual impairment [Unknown]
  - Malaise [Unknown]
  - Neck surgery [Unknown]
  - Drug dose omission [Unknown]

NARRATIVE: CASE EVENT DATE: 2015
